FAERS Safety Report 7409939-6 (Version None)
Quarter: 2011Q2

REPORT INFORMATION
  Report Type: 
  Country: None (occurrence: None)
  Receive Date: 20110412
  Receipt Date: 20110331
  Transmission Date: 20111010
  Serious: Yes (Hospitalization)
  Sender: FDA-Public Use
  Company Number: PHHY2011CA29741

PATIENT
  Sex: Male

DRUGS (2)
  1. AFINITOR [Suspect]
     Indication: PANCREATIC NEUROENDOCRINE TUMOUR METASTATIC
     Dosage: 10 MG, EVERY 2 DAYS
     Route: 048
     Dates: start: 20110324
  2. SANDOSTATIN LAR [Suspect]
     Indication: PANCREATIC NEUROENDOCRINE TUMOUR METASTATIC
     Dosage: 40 MG, EVERY 4 WEEKS
     Route: 030
     Dates: start: 20100319

REACTIONS (1)
  - BILE DUCT OBSTRUCTION [None]
